FAERS Safety Report 7443559-2 (Version None)
Quarter: 2011Q2

REPORT INFORMATION
  Report Type: 
  Country: None (occurrence: None)
  Receive Date: 20110419
  Receipt Date: 20110406
  Transmission Date: 20111010
  Serious: Yes (Other)
  Sender: FDA-Public Use
  Company Number: 2011MA003761

PATIENT
  Age: 24 Year
  Sex: Male

DRUGS (2)
  1. CITALOPRAM HYDROBROMIDE [Suspect]
     Indication: OBSESSIVE-COMPULSIVE DISORDER
     Dosage: 40 MG; QD;
     Dates: start: 20081227
  2. LORAZEPAM [Concomitant]

REACTIONS (7)
  - SEXUAL DYSFUNCTION [None]
  - PREMATURE EJACULATION [None]
  - HEADACHE [None]
  - SERUM FERRITIN DECREASED [None]
  - DEPRESSION [None]
  - LIBIDO DECREASED [None]
  - MALE ORGASMIC DISORDER [None]
